FAERS Safety Report 6962224-9 (Version None)
Quarter: 2010Q3

REPORT INFORMATION
  Report Type: 
  Country: None (occurrence: None)
  Receive Date: 20100902
  Receipt Date: 20100827
  Transmission Date: 20110219
  Serious: Yes (Other)
  Sender: FDA-Public Use
  Company Number: FR-WYE-H14625510

PATIENT
  Sex: Male

DRUGS (7)
  1. INIPOMP [Suspect]
     Route: 048
     Dates: start: 20100222, end: 20100225
  2. ALFUZOSIN [Concomitant]
     Dosage: UNKNOWN
  3. TRIMETAZIDINE [Concomitant]
     Dosage: UNKNOWN
  4. PREVISCAN [Suspect]
     Indication: ATRIAL FLUTTER
     Dosage: UNKNOW DAILY DOSE (DEPENDENT ON INR)
     Route: 048
     Dates: start: 20100221, end: 20100318
  5. CALCIPARINE [Suspect]
     Indication: ATRIAL FLUTTER
     Dosage: 25000 IU, FREQUENCY NOT SPECIFIED
     Route: 058
     Dates: start: 20100220, end: 20100221
  6. CALCIPARINE [Suspect]
     Dosage: 20000 IU, FREQUENCY NOT SPECIFIED
     Route: 058
     Dates: start: 20100222, end: 20100223
  7. CALCIPARINE [Suspect]
     Dosage: 15000 IU, FREQUENCY NOT SPECIFIED
     Route: 058
     Dates: start: 20100224, end: 20100226

REACTIONS (1)
  - TOXIC SKIN ERUPTION [None]
